FAERS Safety Report 4427360-X (Version None)
Quarter: 2004Q3

REPORT INFORMATION
  Report Type: 
  Country: None (occurrence: None)
  Receive Date: 20040811
  Receipt Date: 20040727
  Transmission Date: 20050211
  Serious: Yes (Hospitalization)
  Sender: FDA-Public Use
  Company Number: 2004-BP-06118RO

PATIENT
  Age: 59 Year
  Sex: Male
  Weight: 106.1 kg

DRUGS (9)
  1. LITHIUM CARBONATE [Suspect]
  2. BIFEPRUNOX - STUDY [Suspect]
     Indication: SCHIZOPHRENIA
     Dates: start: 20040503, end: 20040513
  3. HYDROCHLOROTHIAZIDE [Suspect]
  4. NOVOLIN INSULIN (INSULIN HUMAN INJECTION, ISOPHANE) [Concomitant]
  5. LISINOPRIL [Concomitant]
  6. GEMFIBROZIL [Concomitant]
  7. ATIVAN [Concomitant]
  8. ZITHROMAX [Concomitant]
  9. ZYPREXA [Concomitant]

REACTIONS (16)
  - AGITATION [None]
  - BLOOD CHLORIDE DECREASED [None]
  - BLOOD CREATININE INCREASED [None]
  - BLOOD UREA INCREASED [None]
  - DELUSION [None]
  - DYSARTHRIA [None]
  - FORMICATION [None]
  - GRANDIOSITY [None]
  - HYPERHIDROSIS [None]
  - HYPONATRAEMIA [None]
  - INAPPROPRIATE ANTIDIURETIC HORMONE SECRETION [None]
  - MENTAL IMPAIRMENT [None]
  - MENTAL STATUS CHANGES [None]
  - PSYCHOTIC DISORDER [None]
  - SUICIDAL IDEATION [None]
  - THINKING ABNORMAL [None]
